FAERS Safety Report 7451597-9 (Version None)
Quarter: 2011Q2

REPORT INFORMATION
  Report Type: 
  Country: None (occurrence: None)
  Receive Date: 20110502
  Receipt Date: 20100407
  Transmission Date: 20111010
  Serious: No
  Sender: FDA-Public Use
  Company Number: US-ASTRAZENECA-2010SE15264

PATIENT
  Sex: Female

DRUGS (3)
  1. FOLIC ACID [Concomitant]
  2. NEXIUM [Suspect]
     Indication: GASTROOESOPHAGEAL REFLUX DISEASE
     Dosage: 20 MG ONCE OR TWICE A DAY
     Route: 048
     Dates: start: 20030101
  3. VITAMIN B-12 [Concomitant]

REACTIONS (4)
  - DRUG ADMINISTRATION ERROR [None]
  - BONE DENSITY DECREASED [None]
  - VITAMIN B COMPLEX DEFICIENCY [None]
  - BODY HEIGHT DECREASED [None]
